FAERS Safety Report 7372184-7 (Version None)
Quarter: 2011Q1

REPORT INFORMATION
  Report Type: 
  Country: None (occurrence: None)
  Receive Date: 20110322
  Receipt Date: 20110322
  Transmission Date: 20110831
  Serious: Yes (Hospitalization)
  Sender: FDA-Public Use
  Company Number: None

PATIENT
  Sex: Female
  Weight: 14.7 kg

DRUGS (5)
  1. ZOFRAN [Concomitant]
  2. LOPERAMIDE [Concomitant]
  3. IRINOTECAN MILLENIUM PHARMACEUTICALS [Suspect]
     Indication: NEUROBLASTOMA
     Dosage: 28 MG 3X EVERY 21 DAYS IVPB
     Route: 042
  4. CEFIXIME [Concomitant]
  5. VELCADE [Suspect]
     Indication: NEUROBLASTOMA
     Dosage: 0.74 MG 4X EVERY 21 DAYS IVP
     Route: 042

REACTIONS (3)
  - TACHYPNOEA [None]
  - DYSPHAGIA [None]
  - INFLUENZA [None]
